FAERS Safety Report 9834657 (Version 4)
Quarter: 2015Q1

REPORT INFORMATION
  Report Type: Spontaneous
  Country: US (occurrence: US)
  Receive Date: 20140122
  Receipt Date: 20150210
  Transmission Date: 20150721
  Serious: Yes (Disabling, Other)
  Sender: FDA-Public Use
  Company Number: US-BAYER-2014-006883

PATIENT
  Age: 29 Year
  Sex: Female

DRUGS (3)
  1. DOCUSATE SODIUM. [Concomitant]
     Active Substance: DOCUSATE SODIUM
  2. MIRENA [Suspect]
     Active Substance: LEVONORGESTREL
     Indication: CONTRACEPTION
     Dosage: 20 MCG/24HR, CONT
     Route: 015
     Dates: start: 20121124, end: 20130613
  3. IBUPROFEN. [Concomitant]
     Active Substance: IBUPROFEN

REACTIONS (16)
  - Ectopic pregnancy with contraceptive device [None]
  - Genital haemorrhage [None]
  - Drug ineffective [None]
  - Internal injury [None]
  - Anhedonia [None]
  - Medical device discomfort [None]
  - Uterine perforation [None]
  - Medical device complication [None]
  - Malaise [None]
  - Infertility female [None]
  - Injury [None]
  - Pain [None]
  - Scar [None]
  - Emotional distress [None]
  - Deformity [None]
  - Device failure [None]

NARRATIVE: CASE EVENT DATE: 20121126
